FAERS Safety Report 4868766-4 (Version None)
Quarter: 2005Q4

REPORT INFORMATION
  Report Type: 
  Country: None (occurrence: None)
  Receive Date: 20051223
  Receipt Date: 20051207
  Transmission Date: 20060501
  Serious: Yes (Hospitalization)
  Sender: FDA-Public Use
  Company Number: 2005SE002729

PATIENT
  Sex: Male

DRUGS (3)
  1. PROGRAF [Suspect]
     Indication: LUNG TRANSPLANT
     Dosage: SEE IMAGE
     Route: 048
     Dates: start: 20051101
  2. SOLUPRED (PREDNISOLONE SODIUM SULFOBENZOATE) [Concomitant]
     Indication: LUNG TRANSPLANT
     Dosage: ORAL
     Route: 048
  3. CELLCEPT [Suspect]
     Indication: LUNG TRANSPLANT
     Dosage: ORAL
     Route: 048

REACTIONS (2)
  - ENDOCARDITIS ENTEROCOCCAL [None]
  - ENTEROCOCCAL SEPSIS [None]
